FAERS Safety Report 8179655-4 (Version None)
Quarter: 2012Q1

REPORT INFORMATION
  Report Type: 
  Country: None (occurrence: None)
  Receive Date: 20120229
  Receipt Date: 20120229
  Transmission Date: 20120608
  Serious: Yes (Hospitalization)
  Sender: FDA-Public Use
  Company Number: None

PATIENT
  Age: 45 Year
  Sex: Male

DRUGS (1)
  1. METRONIDAZOLE [Suspect]
     Indication: PROPHYLAXIS
     Dates: start: 20120112

REACTIONS (14)
  - DEVICE FAILURE [None]
  - IMPAIRED WORK ABILITY [None]
  - FEELING HOT [None]
  - PARAESTHESIA [None]
  - FLUSHING [None]
  - ANGINA PECTORIS [None]
  - HYPERVENTILATION [None]
  - RESTLESSNESS [None]
  - PANIC DISORDER [None]
  - FEELING ABNORMAL [None]
  - DIZZINESS [None]
  - FEAR [None]
  - ALCOHOL USE [None]
  - SKIN WARM [None]
